FAERS Safety Report 15886976 (Version 1)
Quarter: 2019Q1

REPORT INFORMATION
  Report Type: Spontaneous
  Country: US (occurrence: US)
  Receive Date: 20190130
  Receipt Date: 20190130
  Transmission Date: 20190417
  Serious: No
  Sender: FDA-Public Use
  Company Number: US-AUROBINDO-AUR-APL-2018-053997

PATIENT
  Sex: Female

DRUGS (3)
  1. DULOXETINE 20 MG [Suspect]
     Active Substance: DULOXETINE
     Dosage: 60 UNK
     Route: 065
  2. DULOXETINE 20 MG [Suspect]
     Active Substance: DULOXETINE
     Indication: PAIN
     Dosage: 30 UNK
     Route: 065
  3. DULOXETINE 20 MG [Suspect]
     Active Substance: DULOXETINE
     Indication: HERPES ZOSTER
     Dosage: 20 MILLIGRAM
     Route: 065

REACTIONS (3)
  - Depression [Unknown]
  - Gait inability [Unknown]
  - Fatigue [Unknown]
